FAERS Safety Report 6749399-1 (Version None)
Quarter: 2010Q2

REPORT INFORMATION
  Report Type: 
  Country: None (occurrence: None)
  Receive Date: 20100601
  Receipt Date: 20100524
  Transmission Date: 20101027
  Serious: Yes (Other)
  Sender: FDA-Public Use
  Company Number: ES-ROCHE-704673

PATIENT
  Age: 42 Year
  Sex: Male

DRUGS (2)
  1. PEGASYS [Suspect]
     Route: 058
     Dates: start: 20090220
  2. COPEGUS [Interacting]
     Route: 048
     Dates: start: 20090220

REACTIONS (3)
  - DRY EYE [None]
  - HYPOTHYROIDISM [None]
  - ULCERATIVE KERATITIS [None]
